FAERS Safety Report 12953631 (Version 2)
Quarter: 2017Q2

REPORT INFORMATION
  Report Type: Spontaneous
  Country: US (occurrence: US)
  Receive Date: 20161117
  Receipt Date: 20170412
  Transmission Date: 20170830
  Serious: No
  Sender: FDA-Public Use
  Company Number: US-ASTRAZENECA-2016SF18667

PATIENT
  Age: 25058 Day
  Sex: Female
  Weight: 82.6 kg

DRUGS (1)
  1. BYDUREON [Suspect]
     Active Substance: EXENATIDE
     Indication: TYPE 2 DIABETES MELLITUS
     Route: 058
     Dates: start: 20161108

REACTIONS (3)
  - Injection site pain [Recovered/Resolved]
  - Circumstance or information capable of leading to medication error [Unknown]
  - Device issue [Unknown]

NARRATIVE: CASE EVENT DATE: 20161108
